FAERS Safety Report 16795597 (Version 1)
Quarter: 2019Q3

REPORT INFORMATION
  Report Type: Spontaneous
  Country: US (occurrence: US)
  Receive Date: 20190911
  Receipt Date: 20190911
  Transmission Date: 20191005
  Serious: Yes (Other)
  Sender: FDA-Public Use
  Company Number: US-GILEAD-2019-0427475

PATIENT
  Age: 60 Year
  Sex: Female

DRUGS (8)
  1. NORINYL [ETHINYLESTRADIOL;NORETHISTERONE] [Concomitant]
     Dosage: UNK
  2. IBUPROFEN. [Concomitant]
     Active Substance: IBUPROFEN
     Dosage: 1 UNK
  3. ALBUTEROL [SALBUTAMOL] [Concomitant]
     Active Substance: ALBUTEROL
     Dosage: UNK
  4. ALENDRONATE [Concomitant]
     Active Substance: ALENDRONATE SODIUM
     Dosage: UNK
  5. FLEXERIL [CEFIXIME] [Concomitant]
     Active Substance: CEFIXIME
     Dosage: UNK
  6. LEVOTHYROXINE SODIUM. [Concomitant]
     Active Substance: LEVOTHYROXINE SODIUM
     Dosage: UNK
  7. EPCLUSA [Suspect]
     Active Substance: SOFOSBUVIR\VELPATASVIR
     Indication: CHRONIC HEPATITIS C
     Dosage: 1 DOSAGE FORM, QD
     Route: 048
     Dates: start: 201901
  8. LINZESS [Concomitant]
     Active Substance: LINACLOTIDE
     Dosage: UNK

REACTIONS (1)
  - Hepatic cirrhosis [Unknown]

NARRATIVE: CASE EVENT DATE: 2019
